FAERS Safety Report 9179986 (Version 1)
Quarter: 2013Q1

REPORT INFORMATION
  Report Type: Spontaneous
  Country: US (occurrence: US)
  Receive Date: 20130321
  Receipt Date: 20130321
  Transmission Date: 20140127
  Serious: Yes (Other)
  Sender: FDA-Public Use
  Company Number: US-PFIZER INC-2013089158

PATIENT
  Age: 69 Year
  Sex: Female
  Weight: 57.14 kg

DRUGS (4)
  1. TOVIAZ [Suspect]
     Indication: INCONTINENCE
     Dosage: 4 MG, 1X/DAY
     Dates: start: 20130212
  2. NITROFURANTOIN [Suspect]
     Indication: CYSTITIS
     Dosage: 100 MG, 2X/DAY
     Dates: start: 2013
  3. METOPROLOL [Concomitant]
     Indication: HYPERTENSION
     Dosage: 100 MG, 2X/DAY
     Dates: start: 1997
  4. TOPIRAMATE [Concomitant]
     Indication: MIGRAINE
     Dosage: 2.5 MG, 2X/DAY

REACTIONS (1)
  - Cystitis [Not Recovered/Not Resolved]
